FAERS Safety Report 6417281-5 (Version None)
Quarter: 2009Q4

REPORT INFORMATION
  Report Type: 
  Country: None (occurrence: None)
  Receive Date: 20091028
  Receipt Date: 20091015
  Transmission Date: 20100525
  Serious: Yes (Death)
  Sender: FDA-Public Use
  Company Number: PHEH2009US14458

PATIENT
  Sex: Female
  Weight: 85.261 kg

DRUGS (1)
  1. TASIGNA [Suspect]
     Indication: GASTRIC CANCER
     Dosage: 400 MG, BID
     Route: 048
     Dates: start: 20081107, end: 20090610

REACTIONS (1)
  - DEATH [None]
